FAERS Safety Report 10248478 (Version 1)
Quarter: 2014Q2

REPORT INFORMATION
  Report Type: Spontaneous
  Country: US (occurrence: US)
  Receive Date: 20140620
  Receipt Date: 20140620
  Transmission Date: 20141212
  Serious: Yes (Hospitalization)
  Sender: FDA-Public Use
  Company Number: US-BRISTOL-MYERS SQUIBB COMPANY-20992194

PATIENT
  Age: 62 Year
  Sex: Male

DRUGS (2)
  1. BYDUREON [Suspect]
     Indication: TYPE 2 DIABETES MELLITUS
     Dosage: INJECTION
     Route: 058
     Dates: start: 201205, end: 201206
  2. METFORMIN [Concomitant]

REACTIONS (1)
  - Gastroenteritis viral [Recovering/Resolving]
